FAERS Safety Report 4356396-2 (Version None)
Quarter: 2004Q2

REPORT INFORMATION
  Report Type: 
  Country: None (occurrence: None)
  Receive Date: 20040511
  Receipt Date: 20040511
  Transmission Date: 20050107
  Serious: No
  Sender: FDA-Public Use
  Company Number: None

PATIENT
  Age: 48 Year
  Sex: Male
  Weight: 65.7716 kg

DRUGS (1)
  1. PEG-INTRON [Suspect]
     Indication: HEPATITIS C
     Dosage: 120 YG 0.5 WEEKLY OTHER
     Dates: start: 20021015, end: 20021125

REACTIONS (2)
  - TUNNEL VISION [None]
  - VISUAL ACUITY REDUCED [None]
